FAERS Safety Report 8514287-7 (Version None)
Quarter: 2012Q2

REPORT INFORMATION
  Report Type: 
  Country: None (occurrence: None)
  Receive Date: 20120406
  Receipt Date: 20120105
  Transmission Date: 20120825
  Serious: No
  Sender: FDA-Public Use
  Company Number: US-CYPR-2011-000079

PATIENT
  Sex: Male
  Weight: 82.5547 kg

DRUGS (10)
  1. VICODIN [Concomitant]
  2. AMITRIPTYLINE HCL [Concomitant]
  3. ASPIRIN [Suspect]
     Indication: CORONARY ARTERY DISEASE
     Dosage: 325 MG, ORAL
     Route: 048
     Dates: start: 20091223
  4. PRAVACHOL [Concomitant]
  5. CYPHER STENT [Concomitant]
  6. BYSTOLIC [Concomitant]
  7. ZOCOR [Concomitant]
  8. CLOPIDOGREL [Suspect]
     Indication: ANTIPLATELET THERAPY
     Dosage: 75 MG, ORAL
     Route: 048
     Dates: start: 20110117, end: 20111205
  9. CLOPIDOGREL [Suspect]
     Indication: ANTIPLATELET THERAPY
     Dosage: 75 MG, ORAL
     Route: 048
     Dates: start: 20111222
  10. VASOTEC [Concomitant]

REACTIONS (1)
  - COLON CANCER [None]
